FAERS Safety Report 8401427-3 (Version None)
Quarter: 2012Q2

REPORT INFORMATION
  Report Type: 
  Country: None (occurrence: None)
  Receive Date: 20120601
  Receipt Date: 20120523
  Transmission Date: 20120825
  Serious: Yes (Hospitalization, Other)
  Sender: FDA-Public Use
  Company Number: CA-JNJFOC-20120405753

PATIENT
  Sex: Female
  Weight: 85 kg

DRUGS (6)
  1. REMICADE [Suspect]
     Indication: CROHN'S DISEASE
     Route: 042
  2. REMICADE [Suspect]
     Route: 042
     Dates: start: 20120411
  3. MUTIVITAMINS [Concomitant]
     Route: 065
  4. VITAMIN D [Concomitant]
     Route: 065
  5. CALCIUM [Concomitant]
     Route: 065
  6. AZATHIOPRINE [Concomitant]
     Route: 065

REACTIONS (3)
  - INCISION SITE INFECTION [None]
  - SMALL INTESTINAL RESECTION [None]
  - INTRACRANIAL HYPOTENSION [None]
